FAERS Safety Report 13672798 (Version 1)
Quarter: 2017Q2

REPORT INFORMATION
  Report Type: Spontaneous
  Country: US (occurrence: US)
  Receive Date: 20170621
  Receipt Date: 20170621
  Transmission Date: 20170830
  Serious: Yes (Hospitalization, Other)
  Sender: FDA-Public Use
  Company Number: US-PFIZER INC-2017265740

PATIENT
  Age: 63 Year
  Sex: Female

DRUGS (1)
  1. IBRANCE [Suspect]
     Active Substance: PALBOCICLIB
     Indication: BREAST CANCER FEMALE
     Dosage: 75 MG, CYCLIC(DAILY FOR 21 DAYS ON AND 7 DAYS OFF FOR 28 DAYS CYCLE)
     Route: 048

REACTIONS (7)
  - Influenza [Unknown]
  - Drug dose omission [Unknown]
  - Atrial fibrillation [Unknown]
  - Pyrexia [Unknown]
  - Palpitations [Unknown]
  - Viral upper respiratory tract infection [Unknown]
  - Alopecia [Unknown]
